FAERS Safety Report 14364639 (Version 1)
Quarter: 2018Q1

REPORT INFORMATION
  Report Type: Spontaneous
  Country: US (occurrence: US)
  Receive Date: 20180107
  Receipt Date: 20180107
  Transmission Date: 20180509
  Serious: Yes (Disabling, Other)
  Sender: FDA-Public Use
  Company Number: None

PATIENT
  Age: 61 Year
  Sex: Female
  Weight: 55 kg

DRUGS (1)
  1. PICATO [Suspect]
     Active Substance: INGENOL MEBUTATE
     Indication: ACTINIC KERATOSIS
     Route: 061
     Dates: start: 20171227

REACTIONS (7)
  - Skin exfoliation [None]
  - Skin warm [None]
  - Skin reaction [None]
  - Erythema [None]
  - Skin ulcer [None]
  - Skin erosion [None]
  - Pain [None]

NARRATIVE: CASE EVENT DATE: 20180107
